FAERS Safety Report 12440394 (Version 1)
Quarter: 2016Q2

REPORT INFORMATION
  Report Type: Report from Study
  Country: US (occurrence: US)
  Receive Date: 20160606
  Receipt Date: 20160606
  Transmission Date: 20160815
  Serious: No
  Sender: FDA-Public Use
  Company Number: US-AMGEN-USASL2016062597

PATIENT
  Age: 71 Year
  Sex: Female
  Weight: 68.93 kg

DRUGS (10)
  1. HYDRALAZINE [Concomitant]
     Active Substance: HYDRALAZINE HYDROCHLORIDE
     Dosage: TAKE 1 TABLET 3 TIMES A DAY
     Route: 048
  2. LASIX [Concomitant]
     Active Substance: FUROSEMIDE
     Dosage: TAKE 1 TABLET TWICE A DAY
     Route: 048
  3. PROCRIT [Suspect]
     Active Substance: ERYTHROPOIETIN
     Indication: ANAEMIA
     Dosage: 10,000 UNITS/ML, 1 ML, EVERY 2 WEEKS
     Route: 065
  4. CARVEDILOL. [Concomitant]
     Active Substance: CARVEDILOL
     Dosage: 1 TABLET EVERY DAY
     Route: 048
  5. LEVEMIR [Concomitant]
     Active Substance: INSULIN DETEMIR
     Dosage: 10 UNITS, QD
  6. PRAVASTATIN [Concomitant]
     Active Substance: PRAVASTATIN\PRAVASTATIN SODIUM
     Dosage: TAKE 1 TABLET EVERY DAY
     Route: 048
  7. FERROUS SULFATE. [Concomitant]
     Active Substance: FERROUS SULFATE
     Dosage: TAKE 1 TABLET 3 TIMES A DAY
     Route: 048
  8. PAROXETINE. [Concomitant]
     Active Substance: PAROXETINE
     Dosage: TAKE 1 TABLET EVERY DAY
     Route: 048
  9. CLONIDINE HCL [Concomitant]
     Active Substance: CLONIDINE HYDROCHLORIDE
     Dosage: TAKE 1 TABLET TWICE A DAY
     Route: 048
  10. MECLIZINE [Concomitant]
     Active Substance: MECLIZINE HYDROCHLORIDE
     Dosage: TAKE 1 TABLET 3 TIMES A DAY AS NEEDED
     Route: 048

REACTIONS (3)
  - Hypocalcaemia [Unknown]
  - Exercise tolerance decreased [Unknown]
  - Vitamin D deficiency [Unknown]
